FAERS Safety Report 5386411-9 (Version None)
Quarter: 2007Q3

REPORT INFORMATION
  Report Type: 
  Country: None (occurrence: None)
  Receive Date: 20070710
  Receipt Date: 20070702
  Transmission Date: 20080115
  Serious: No
  Sender: FDA-Public Use
  Company Number: TCI2007A02860

PATIENT
  Age: 61 Year
  Sex: Female

DRUGS (1)
  1. LANSAP [Suspect]
     Indication: HELICOBACTER INFECTION
     Dosage: UNK PER ORAL
     Route: 048

REACTIONS (1)
  - DIPLOPIA [None]
